FAERS Safety Report 5384459-1 (Version None)
Quarter: 2007Q3

REPORT INFORMATION
  Report Type: 
  Country: None (occurrence: None)
  Receive Date: 20070711
  Receipt Date: 20061207
  Transmission Date: 20080115
  Serious: No
  Sender: FDA-Public Use
  Company Number: US-AMGEN-KDL202785

PATIENT
  Sex: Female

DRUGS (2)
  1. KINERET [Suspect]
     Indication: RHEUMATOID ARTHRITIS
     Route: 058
     Dates: start: 20030101
  2. METHOTREXATE [Concomitant]
     Dates: start: 20010101

REACTIONS (6)
  - BLISTER [None]
  - ERYTHEMA [None]
  - GROIN PAIN [None]
  - INJECTION SITE PAIN [None]
  - INJECTION SITE REACTION [None]
  - LOCAL SWELLING [None]
